FAERS Safety Report 21960804 (Version 1)
Quarter: 2023Q1

REPORT INFORMATION
  Report Type: Report from Study
  Country: US (occurrence: US)
  Receive Date: 20230207
  Receipt Date: 20230207
  Transmission Date: 20230417
  Serious: Yes (Hospitalization)
  Sender: FDA-Public Use
  Company Number: US-ABBVIE-4286756

PATIENT
  Sex: Female

DRUGS (1)
  1. RINVOQ [Suspect]
     Active Substance: UPADACITINIB
     Indication: Rheumatoid arthritis
     Dosage: END DATE- JAN 2023
     Route: 048
     Dates: start: 20221110

REACTIONS (7)
  - Meningitis [Unknown]
  - Headache [Not Recovered/Not Resolved]
  - Urinary tract infection [Unknown]
  - Spinal disorder [Not Recovered/Not Resolved]
  - Infection [Not Recovered/Not Resolved]
  - Blood potassium decreased [Recovered/Resolved]
  - Confusional state [Unknown]
